FAERS Safety Report 12298044 (Version 3)
Quarter: 2016Q2

REPORT INFORMATION
  Report Type: Report from Study
  Country: GB (occurrence: GB)
  Receive Date: 20160422
  Receipt Date: 20160517
  Transmission Date: 20160815
  Serious: Yes (Life-Threatening, Hospitalization)
  Sender: FDA-Public Use
  Company Number: GB-VERTEX PHARMACEUTICALS-2016-002480

PATIENT
  Age: 28 Year
  Sex: Female
  Weight: 51 kg

DRUGS (19)
  1. SALBUTAMOL [Concomitant]
     Active Substance: ALBUTEROL
  2. TIOTROPIUM [Concomitant]
     Active Substance: TIOTROPIUM
  3. VITAMIN K [Concomitant]
     Active Substance: PHYTONADIONE
  4. FLUTICASONE PROPIONATE\SALMETEROL XINAFOATE [Concomitant]
     Active Substance: FLUTICASONE PROPIONATE\SALMETEROL XINAFOATE
  5. ORKAMBI [Suspect]
     Active Substance: IVACAFTOR\LUMACAFTOR
     Indication: CYSTIC FIBROSIS
     Dosage: 1 DF, BID
     Route: 048
     Dates: start: 20160303, end: 20160309
  6. VITAMIN E [Concomitant]
     Active Substance: .ALPHA.-TOCOPHEROL
  7. ORKAMBI [Suspect]
     Active Substance: IVACAFTOR\LUMACAFTOR
     Dosage: 2 TABS MORNING, 1 TAB NIGHT FOR ONE WEEK, TO BE INCREASED TO 2 TABS BID IF TOLERATED
     Route: 048
     Dates: start: 20160310, end: 20160313
  8. MEROPENEM. [Concomitant]
     Active Substance: MEROPENEM
     Dosage: 2 G, TID
     Route: 042
     Dates: start: 20160313, end: 20160321
  9. ACETYLCYSTEINE. [Concomitant]
     Active Substance: ACETYLCYSTEINE
  10. ACCRETE D3 [Concomitant]
  11. LEVEMIR [Concomitant]
     Active Substance: INSULIN DETEMIR
  12. LORAZEPAM. [Concomitant]
     Active Substance: LORAZEPAM
  13. VITAMIN A + D [Concomitant]
  14. CREON [Concomitant]
     Active Substance: PANCRELIPASE AMYLASE\PANCRELIPASE LIPASE\PANCRELIPASE PROTEASE
  15. PREDNISOLONE. [Concomitant]
     Active Substance: PREDNISOLONE
  16. AZITHROMYCIN ANHYDROUS. [Concomitant]
     Active Substance: AZITHROMYCIN ANHYDROUS
  17. DORNASE ALFA [Concomitant]
     Active Substance: DORNASE ALFA
  18. HUMALOG [Concomitant]
     Active Substance: INSULIN LISPRO
  19. TOBRAMYCIN. [Concomitant]
     Active Substance: TOBRAMYCIN
     Indication: UPPER RESPIRATORY TRACT INFECTION
     Dosage: 180 MG, BID
     Route: 042
     Dates: start: 20160313, end: 20160321

REACTIONS (4)
  - Pulmonary sepsis [Recovered/Resolved]
  - Rash generalised [Recovered/Resolved]
  - Oral candidiasis [Unknown]
  - Infective pulmonary exacerbation of cystic fibrosis [Recovered/Resolved]

NARRATIVE: CASE EVENT DATE: 201603
